FAERS Safety Report 9807100 (Version 1)
Quarter: 2014Q1

REPORT INFORMATION
  Report Type: Spontaneous
  Country: US (occurrence: US)
  Receive Date: 20140110
  Receipt Date: 20140110
  Transmission Date: 20141002
  Serious: No
  Sender: FDA-Public Use
  Company Number: US-009507513-1401USA001680

PATIENT
  Sex: Female

DRUGS (6)
  1. SAPHRIS [Suspect]
     Indication: BIPOLAR DISORDER
     Dosage: 5MG DAILY
     Route: 048
     Dates: start: 201207, end: 2012
  2. SAPHRIS [Suspect]
     Dosage: 5MG DAILY
     Route: 048
     Dates: start: 201209
  3. SAPHRIS [Suspect]
     Indication: BIPOLAR DISORDER
     Dosage: 5MG DAILY
     Route: 048
     Dates: start: 2012, end: 201209
  4. SAPHRIS [Suspect]
     Dosage: 5MG DAILY
     Route: 048
  5. ORTHO TRI-CYCLEN LO [Concomitant]
  6. VERAPAMIL [Concomitant]

REACTIONS (8)
  - Poor quality sleep [Recovered/Resolved]
  - Poor quality sleep [Recovered/Resolved]
  - Drug hypersensitivity [Recovered/Resolved]
  - Dizziness [Recovered/Resolved]
  - Dizziness [Recovered/Resolved]
  - Underdose [Unknown]
  - Inappropriate schedule of drug administration [Unknown]
  - Incorrect route of drug administration [Unknown]
